FAERS Safety Report 7720421-9 (Version None)
Quarter: 2011Q3

REPORT INFORMATION
  Report Type: 
  Country: None (occurrence: None)
  Receive Date: 20110825
  Receipt Date: 20110812
  Transmission Date: 20111222
  Serious: Yes (Life-Threatening, Hospitalization)
  Sender: FDA-Public Use
  Company Number: IPC201108-003130

PATIENT
  Age: 18 Year
  Sex: Male

DRUGS (1)
  1. PROPRANOLOL HYDROCHLORIDE [Suspect]
     Dosage: 80 MG, ORAL
     Route: 048

REACTIONS (8)
  - HUNGER [None]
  - LOSS OF CONSCIOUSNESS [None]
  - CARDIO-RESPIRATORY ARREST [None]
  - CONVULSION [None]
  - FALL [None]
  - BLOOD PRESSURE SYSTOLIC INCREASED [None]
  - FEELING HOT [None]
  - BRADYCARDIA [None]
